FAERS Safety Report 4939427-8 (Version None)
Quarter: 2006Q1

REPORT INFORMATION
  Report Type: 
  Country: None (occurrence: None)
  Receive Date: 20060310
  Receipt Date: 20060227
  Transmission Date: 20060701
  Serious: Yes (Hospitalization, Other)
  Sender: FDA-Public Use
  Company Number: US-BRISTOL-MYERS SQUIBB COMPANY-13305438

PATIENT
  Sex: Female

DRUGS (5)
  1. ABILIFY [Suspect]
     Route: 048
  2. TOPAMAX [Suspect]
  3. LEXAPRO [Suspect]
  4. REMERON [Suspect]
  5. ZYPREXA [Suspect]

REACTIONS (6)
  - DRUG EXPOSURE DURING PREGNANCY [None]
  - DRUG EXPOSURE VIA BREAST MILK [None]
  - FEEDING DISORDER NEONATAL [None]
  - NEONATAL DISORDER [None]
  - NEONATAL OVERSEDATION [None]
  - PREGNANCY [None]
